FAERS Safety Report 8648919 (Version 3)
Quarter: 2012Q4

REPORT INFORMATION
  Report Type: Report from Study
  Country: AU (occurrence: AU)
  Receive Date: 20120704
  Receipt Date: 20121002
  Transmission Date: 20130627
  Serious: Yes (Death, Hospitalization)
  Sender: FDA-Public Use
  Company Number: AU-BRISTOL-MYERS SQUIBB COMPANY-16710345

PATIENT
  Age: 74 Year
  Sex: Male
  Weight: 131 kg

DRUGS (14)
  1. PACLITAXEL [Suspect]
     Indication: GASTRIC CANCER
     Dosage: day 1 8 and 15 everey 4 week cycle last dose on 14Jun2012
     Route: 042
     Dates: start: 20120412, end: 201206
  2. NOVOMIX [Concomitant]
     Dates: start: 20070117
  3. ALLOPURINOL [Concomitant]
     Indication: GOUT
     Dates: start: 20070117
  4. ESOMEPRAZOLE [Concomitant]
     Indication: ANXIETY
     Dates: start: 20070117
  5. FUROSEMIDE [Concomitant]
     Indication: ANXIETY
     Dates: start: 20120316
  6. LORAZEPAM [Concomitant]
     Indication: ANXIETY
     Dates: start: 20120306
  7. MICARDIS [Concomitant]
     Indication: VOMITING
     Dates: start: 20070117
  8. MICARDIS [Concomitant]
     Indication: NAUSEA
     Dates: start: 20070117
  9. BISOPROLOL [Concomitant]
     Indication: NAUSEA
     Dates: start: 20070117
  10. BISOPROLOL [Concomitant]
     Indication: VOMITING
     Dates: start: 20070117
  11. MOTILIUM [Concomitant]
     Indication: NAUSEA
     Dates: start: 20111103
  12. MOTILIUM [Concomitant]
     Indication: VOMITING
     Dates: start: 20111103
  13. PANAMAX [Concomitant]
     Indication: NAUSEA
     Dates: start: 20120506
  14. PANAMAX [Concomitant]
     Indication: VOMITING
     Dates: start: 20120506

REACTIONS (2)
  - Myocardial infarction [Fatal]
  - Dyspnoea [Not Recovered/Not Resolved]
